FAERS Safety Report 6168611-3 (Version None)
Quarter: 2009Q2

REPORT INFORMATION
  Report Type: 
  Country: None (occurrence: None)
  Receive Date: 20090427
  Receipt Date: 20090422
  Transmission Date: 20091009
  Serious: Yes (Other)
  Sender: FDA-Public Use
  Company Number: US-BRISTOL-MYERS SQUIBB COMPANY-14598460

PATIENT
  Age: 57 Year
  Sex: Male

DRUGS (1)
  1. ZERIT [Suspect]
     Indication: HIV INFECTION
     Dates: start: 20080501

REACTIONS (3)
  - LIPOATROPHY [None]
  - NODULAR REGENERATIVE HYPERPLASIA [None]
  - PORTAL HYPERTENSION [None]
